FAERS Safety Report 16397850 (Version 1)
Quarter: 2019Q2

REPORT INFORMATION
  Report Type: Report from Study
  Country: BR (occurrence: BR)
  Receive Date: 20190606
  Receipt Date: 20190606
  Transmission Date: 20190711
  Serious: Yes (Other)
  Sender: FDA-Public Use
  Company Number: PHHY2019BR127447

PATIENT
  Sex: Male

DRUGS (1)
  1. ENTRESTO [Suspect]
     Active Substance: SACUBITRIL\VALSARTAN
     Indication: PRODUCT USED FOR UNKNOWN INDICATION
     Dosage: 1 DF,(SACUBITRIL 49 MG/ VALSARTAN 51 MG) UNK
     Route: 065
     Dates: start: 20190120

REACTIONS (6)
  - Paraesthesia [Unknown]
  - Cardiac dysfunction [Unknown]
  - Myocardial infarction [Unknown]
  - Venous occlusion [Unknown]
  - Insomnia [Unknown]
  - Fatigue [Unknown]
